FAERS Safety Report 7832089-1 (Version None)
Quarter: 2011Q4

REPORT INFORMATION
  Report Type: 
  Country: None (occurrence: None)
  Receive Date: 20111022
  Receipt Date: 20111010
  Transmission Date: 20120403
  Serious: Yes (Hospitalization)
  Sender: FDA-Public Use
  Company Number: US-BAYER-201042095NA

PATIENT
  Age: 22 Year
  Sex: Female

DRUGS (7)
  1. TANDEM DHA [Concomitant]
  2. OMEPRAZOLE [Concomitant]
     Indication: GASTRIC DISORDER
     Dosage: 20 MG, QD
     Route: 048
     Dates: start: 20081006
  3. YAZ [Suspect]
     Indication: CONTRACEPTION
     Route: 048
     Dates: start: 20080703, end: 20080926
  4. CARISOPRODOL [Concomitant]
  5. BUTALBITAL ACETAMINOPHEN AND CAFFEINE [Concomitant]
  6. DICYCLOMINE [Concomitant]
     Indication: GASTRIC DISORDER
     Dosage: 20 MG, QD
     Route: 048
     Dates: start: 20081008
  7. CYCLOBENZAPRINE [Concomitant]

REACTIONS (3)
  - CHOLECYSTECTOMY [None]
  - CHOLECYSTITIS CHRONIC [None]
  - ABDOMINAL PAIN [None]
